FAERS Safety Report 4530595-9 (Version None)
Quarter: 2004Q4

REPORT INFORMATION
  Report Type: 
  Country: None (occurrence: None)
  Receive Date: 20041216
  Receipt Date: 20041202
  Transmission Date: 20050328
  Serious: Yes (Hospitalization)
  Sender: FDA-Public Use
  Company Number: 2004213751FR

PATIENT
  Age: 61 Year
  Sex: Male

DRUGS (10)
  1. DOXORUBICIN HCL [Suspect]
     Indication: ILL-DEFINED DISORDER
     Dosage: (CTCLE 2), INTRAVENOUS
     Route: 042
     Dates: start: 20040216, end: 20040216
  2. CEFPODOXIME PROXETIL TABLET (CEFPODOXIME PROXETIL) (CEFPODOXIME PROXET [Suspect]
     Indication: ILL-DEFINED DISORDER
     Dosage: ORAL
     Route: 048
     Dates: start: 20040305, end: 20040312
  3. CYCLOPHOSPHAMIDE [Suspect]
     Indication: ILL-DEFINED DISORDER
     Dosage: (CYCLE 2), INTRAVENOUS
     Route: 042
     Dates: start: 20040216, end: 20040216
  4. VINCRISTINE SULFATE [Suspect]
     Indication: ILL-DEFINED DISORDER
     Dosage: 1.89 MG (CYCLE 2), INTRAVENOUS
     Route: 042
     Dates: start: 20040216, end: 20040216
  5. PREDNISOLONE SODIUM SULFOBENZOATE (PREDNISOLONE SODIUM SULFOBENZOATE) [Suspect]
     Indication: ILL-DEFINED DISORDER
     Dosage: (CYCLE 2), ORAL
     Route: 048
     Dates: start: 20040305, end: 20040312
  6. OFLOXACIN [Suspect]
     Indication: ILL-DEFINED DISORDER
     Dosage: ORAL
     Route: 048
     Dates: start: 20040305, end: 20040312
  7. ONDANSETRON HCL [Concomitant]
  8. ALLOPURINOL [Concomitant]
  9. FENOFIBRATE (FEOFIBRATE) [Concomitant]
  10. METHYLPREDNISOLONE [Concomitant]

REACTIONS (4)
  - HYPOGAMMAGLOBULINAEMIA [None]
  - INFECTION [None]
  - NEUTROPHIL COUNT DECREASED [None]
  - WHITE BLOOD CELL COUNT DECREASED [None]
